FAERS Safety Report 4823019-5 (Version None)
Quarter: 2005Q4

REPORT INFORMATION
  Report Type: 
  Country: None (occurrence: None)
  Receive Date: 20051104
  Receipt Date: 20051026
  Transmission Date: 20060501
  Serious: Yes (Other)
  Sender: FDA-Public Use
  Company Number: 2005-10-1684

PATIENT
  Age: 44 Year
  Sex: Female

DRUGS (1)
  1. INTRON A [Suspect]
     Indication: HEPATITIS C
     Dosage: UNKNOWN
     Route: 065
     Dates: start: 19970101, end: 19990101

REACTIONS (8)
  - CEREBRAL DISORDER [None]
  - DIFFICULTY IN WALKING [None]
  - DYSSTASIA [None]
  - FALL [None]
  - LOSS OF CONSCIOUSNESS [None]
  - PELVIC FRACTURE [None]
  - SPINAL FRACTURE [None]
  - WEIGHT DECREASED [None]
